FAERS Safety Report 18074325 (Version 1)
Quarter: 2020Q3

REPORT INFORMATION
  Report Type: Spontaneous
  Country: US (occurrence: US)
  Receive Date: 20200727
  Receipt Date: 20200727
  Transmission Date: 20201103
  Serious: No
  Sender: FDA-Public Use
  Company Number: US-FRESENIUS KABI-FK202007555

PATIENT
  Age: 88 Year
  Sex: Male
  Weight: 75.7 kg

DRUGS (3)
  1. HEPARIN SODIUM INJECTION, USP [Suspect]
     Active Substance: HEPARIN SODIUM
     Dosage: 6000 USP UNITS, TOTAL DOSE OF 291 UNITS/KG
     Dates: start: 20200720, end: 20200720
  2. HEPARIN SODIUM INJECTION, USP [Suspect]
     Active Substance: HEPARIN SODIUM
     Dosage: 6000 USP UNITS, TOTAL DOSE OF 291 UNITS/KG
     Dates: start: 20200720, end: 20200720
  3. HEPARIN SODIUM INJECTION, USP [Suspect]
     Active Substance: HEPARIN SODIUM
     Indication: ANTICOAGULANT THERAPY
     Dosage: 10000 USP UNITS, TOTAL DOSE OF 291 UNITS/KG
     Dates: start: 20200720, end: 20200720

REACTIONS (1)
  - Drug ineffective [Unknown]

NARRATIVE: CASE EVENT DATE: 20200720
